FAERS Safety Report 10708870 (Version 2)
Quarter: 2015Q1

REPORT INFORMATION
  Report Type: Spontaneous
  Country: US (occurrence: US)
  Receive Date: 20150113
  Receipt Date: 20150223
  Transmission Date: 20150721
  Serious: Yes (Other)
  Sender: FDA-Public Use
  Company Number: US-AMGEN-USASP2015002060

PATIENT
  Age: 41 Year
  Sex: Female
  Weight: 87.98 kg

DRUGS (4)
  1. LISINOPRIL. [Concomitant]
     Active Substance: LISINOPRIL
     Indication: HYPERTENSION
     Dosage: UNK, QD
     Route: 048
  2. LUPRON [Concomitant]
     Active Substance: LEUPROLIDE ACETATE
     Indication: BREAST CANCER
     Dosage: 3.75 UNK, Q4WK
     Route: 030
     Dates: start: 201306
  3. ERIBULIN [Suspect]
     Active Substance: ERIBULIN
     Indication: BREAST CANCER
     Dosage: 1.4 MG/M2, DAY 1 AND 8
     Route: 042
     Dates: start: 201412, end: 201502
  4. XGEVA [Suspect]
     Active Substance: DENOSUMAB
     Indication: METASTASES TO BONE
     Dosage: 120 MG, Q4WK
     Route: 058
     Dates: start: 20131022

REACTIONS (1)
  - Cellulitis [Recovering/Resolving]

NARRATIVE: CASE EVENT DATE: 20150106
